FAERS Safety Report 22004384 (Version 1)
Quarter: 2023Q1

REPORT INFORMATION
  Report Type: Other
  Country: CA (occurrence: None)
  Receive Date: 20230217
  Receipt Date: 20230217
  Transmission Date: 20230418
  Serious: No
  Sender: FDA-Public Use
  Company Number: CA-ROCHE-3287336

PATIENT
  Sex: Male

DRUGS (2)
  1. OCREVUS [Suspect]
     Active Substance: OCRELIZUMAB
     Indication: Relapsing-remitting multiple sclerosis
     Dosage: 300 MG AT DAY 0 AND 14, THEN 600 MG EVERY 6 MONTH
     Route: 042
     Dates: start: 20210630
  2. PFIZER BIVALENT VACCINE (UNK INGREDIENTS) [Concomitant]

REACTIONS (2)
  - Mobility decreased [Not Recovered/Not Resolved]
  - COVID-19 [Recovered/Resolved with Sequelae]
